FAERS Safety Report 14290554 (Version 1)
Quarter: 2017Q4

REPORT INFORMATION
  Report Type: Spontaneous
  Country: TW (occurrence: TW)
  Receive Date: 20171215
  Receipt Date: 20171215
  Transmission Date: 20180321
  Serious: Yes (Hospitalization, Other)
  Sender: FDA-Public Use
  Company Number: TW-SHIRE-TW201732755

PATIENT

DRUGS (2)
  1. RIXUBIS [Suspect]
     Active Substance: COAGULATION FACTOR IX RECOMBINANT HUMAN
     Dosage: 4000 IU, 2X/DAY:BID
     Route: 042
     Dates: start: 20171121
  2. RIXUBIS [Suspect]
     Active Substance: COAGULATION FACTOR IX RECOMBINANT HUMAN
     Indication: HAEMOPHILIA
     Dosage: 4000 IU, 1X/DAY:QD
     Route: 042
     Dates: start: 20171115, end: 20171120

REACTIONS (2)
  - Spontaneous haemorrhage [Unknown]
  - Haemarthrosis [Recovered/Resolved]

NARRATIVE: CASE EVENT DATE: 20171115
